FAERS Safety Report 15675681 (Version 1)
Quarter: 2018Q4

REPORT INFORMATION
  Report Type: Spontaneous
  Country: US (occurrence: US)
  Receive Date: 20181130
  Receipt Date: 20181130
  Transmission Date: 20190205
  Serious: Yes (Other)
  Sender: FDA-Public Use
  Company Number: US-LPDUSPRD-20182231

PATIENT
  Age: 17 Year
  Sex: Female

DRUGS (2)
  1. DILITIAZEM [Suspect]
     Active Substance: DILTIAZEM
     Dosage: UNKNOWN
     Route: 042
     Dates: start: 2016
  2. METOPROLOL INJECTION, USP (1355-10) [Suspect]
     Active Substance: METOPROLOL
     Dosage: UNKNOWN
     Route: 042
     Dates: start: 2016

REACTIONS (4)
  - Toxicity to various agents [Recovered/Resolved]
  - Hypotension [Unknown]
  - Cardiac arrest [Unknown]
  - Medication error [Unknown]

NARRATIVE: CASE EVENT DATE: 2016
